FAERS Safety Report 6474918-2 (Version None)
Quarter: 2009Q4

REPORT INFORMATION
  Report Type: 
  Country: None (occurrence: None)
  Receive Date: 20091204
  Receipt Date: 20091125
  Transmission Date: 20100525
  Serious: Yes (Hospitalization)
  Sender: FDA-Public Use
  Company Number: US-WATSON-2009-02972

PATIENT
  Sex: Male
  Weight: 81.633 kg

DRUGS (6)
  1. FENTANYL-50 [Suspect]
     Indication: INTERVERTEBRAL DISC PROTRUSION
     Dosage: 50 MCG, SINGLE
     Route: 062
     Dates: start: 20090201, end: 20090201
  2. FENTANYL-50 [Suspect]
     Dosage: UNK
     Route: 062
  3. AMLODIPINE [Concomitant]
     Indication: HYPERTENSION
     Dosage: 1 TABLET DAILY
     Route: 048
  4. PROTONIX                           /01263201/ [Concomitant]
     Dosage: 1 TABLET DAILY
     Route: 048
  5. ATENOLOL [Concomitant]
     Indication: HYPERTENSION
     Dosage: 50 MG, DAILY
     Route: 048
  6. ALLOPURINOL [Concomitant]
     Indication: GOUT
     Dosage: 100 MG, DAILY
     Route: 048

REACTIONS (15)
  - ALTERED STATE OF CONSCIOUSNESS [None]
  - BLOOD PRESSURE INCREASED [None]
  - GOUT [None]
  - HEART RATE INCREASED [None]
  - HEPATIC FUNCTION ABNORMAL [None]
  - HYPOAESTHESIA [None]
  - LOSS OF CONSCIOUSNESS [None]
  - OEDEMA PERIPHERAL [None]
  - OVERDOSE [None]
  - PYREXIA [None]
  - RENAL IMPAIRMENT [None]
  - RESPIRATORY ARREST [None]
  - ROTATOR CUFF SYNDROME [None]
  - UNEVALUABLE EVENT [None]
  - WEIGHT DECREASED [None]
